FAERS Safety Report 13887087 (Version 1)
Quarter: 2017Q3

REPORT INFORMATION
  Report Type: Spontaneous
  Country: US (occurrence: US)
  Receive Date: 20170821
  Receipt Date: 20170821
  Transmission Date: 20171127
  Serious: No
  Sender: FDA-Public Use
  Company Number: US-ROCHE-1002181

PATIENT
  Age: 60 Year
  Sex: Female
  Weight: 86.26 kg

DRUGS (4)
  1. LISINOPRIL. [Concomitant]
     Active Substance: LISINOPRIL
  2. PREDNISONE. [Concomitant]
     Active Substance: PREDNISONE
  3. CRESTOR [Concomitant]
     Active Substance: ROSUVASTATIN CALCIUM
     Dosage: DRUG NAME: CRETOR
     Route: 065
  4. ACTEMRA [Suspect]
     Active Substance: TOCILIZUMAB
     Indication: RHEUMATOID ARTHRITIS
     Route: 042
     Dates: start: 20110907, end: 20111005

REACTIONS (6)
  - Arthritis [Unknown]
  - Rash [Not Recovered/Not Resolved]
  - Rash [Unknown]
  - Influenza like illness [Unknown]
  - Pharyngeal ulceration [Unknown]
  - Stomatitis [Unknown]

NARRATIVE: CASE EVENT DATE: 20110907
